FAERS Safety Report 6236153-2 (Version None)
Quarter: 2009Q2

REPORT INFORMATION
  Report Type: 
  Country: None (occurrence: None)
  Receive Date: 20090616
  Receipt Date: 20090604
  Transmission Date: 20091009
  Serious: Yes (Death)
  Sender: FDA-Public Use
  Company Number: WAES 0906USA01704

PATIENT

DRUGS (3)
  1. DECADRON [Suspect]
     Indication: MULTIPLE MYELOMA
     Dosage: 10 MG/PO; 20-40 MG
     Route: 048
  2. REVLIMID [Concomitant]
  3. VELCADE [Concomitant]

REACTIONS (9)
  - ATRIAL FIBRILLATION [None]
  - BONE MARROW FAILURE [None]
  - DEEP VEIN THROMBOSIS [None]
  - DISEASE PROGRESSION [None]
  - DRUG TOXICITY [None]
  - MULTIPLE MYELOMA [None]
  - MYELOMA RECURRENCE [None]
  - NEUROPATHY PERIPHERAL [None]
  - PNEUMONIA FUNGAL [None]
